FAERS Safety Report 17672712 (Version 1)
Quarter: 2020Q2

REPORT INFORMATION
  Report Type: Spontaneous
  Country: FR (occurrence: FR)
  Receive Date: 20200415
  Receipt Date: 20200415
  Transmission Date: 20200713
  Serious: Yes (Life-Threatening)
  Sender: FDA-Public Use
  Company Number: FR-MYLANLABS-2020M1038463

PATIENT
  Age: 32 Year
  Sex: Male

DRUGS (1)
  1. KETOPROFEN MYLAN [Suspect]
     Active Substance: KETOPROFEN
     Indication: RENAL COLIC
     Dosage: 200 MILLIGRAM, QD
     Route: 048
     Dates: start: 20200225, end: 20200301

REACTIONS (3)
  - Klebsiella infection [Recovering/Resolving]
  - Pneumonia necrotising [Recovering/Resolving]
  - Pyelonephritis [Recovering/Resolving]

NARRATIVE: CASE EVENT DATE: 20200304
